FAERS Safety Report 10544847 (Version 1)
Quarter: 2014Q4

REPORT INFORMATION
  Report Type: Spontaneous
  Country: GB (occurrence: None)
  Receive Date: 20141016
  Receipt Date: 20141016
  Transmission Date: 20150529
  Serious: Yes (Hospitalization, Other)
  Sender: FDA-Public Use
  Company Number: 2013GMK006694

PATIENT
  Age: 58 Year
  Sex: Male
  Weight: 82.6 kg

DRUGS (4)
  1. ARCOXIA (ETORICOXIB) [Concomitant]
  2. GABAPENTIN (GABAPENTIN) UNKNOWN [Suspect]
     Active Substance: GABAPENTIN
     Indication: PAIN IN EXTREMITY
     Route: 048
     Dates: start: 201307, end: 20130820
  3. GABAPENTIN (GABAPENTIN) UNKNOWN [Suspect]
     Active Substance: GABAPENTIN
     Indication: SCIATICA
     Route: 048
     Dates: start: 201307, end: 20130820
  4. PROTELOS (STRONTIUM RANELATE) [Concomitant]

REACTIONS (3)
  - Blood urine present [None]
  - Drug ineffective [None]
  - Dysuria [None]

NARRATIVE: CASE EVENT DATE: 201307
